FAERS Safety Report 20825859 (Version 1)
Quarter: 2022Q2

REPORT INFORMATION
  Report Type: Spontaneous
  Country: US (occurrence: None)
  Receive Date: 20220512
  Receipt Date: 20220512
  Transmission Date: 20220721
  Serious: No
  Sender: FDA-Public Use
  Company Number: None

PATIENT
  Age: 81 Year
  Sex: Male
  Weight: 82.51 kg

DRUGS (28)
  1. TAFINLAR [Suspect]
     Active Substance: DABRAFENIB MESYLATE
     Indication: Thyroid cancer
     Dosage: FREQUENCY : TWICE A DAY;?OTHER ROUTE : G TUBE;?
     Route: 050
  2. MEKINIST [Suspect]
     Active Substance: TRAMETINIB DIMETHYL SULFOXIDE
     Dosage: FREQUENCY : DAILY;?OTHER ROUTE : G TUBE;?
     Route: 050
  3. ACETYLCYSTEINE [Concomitant]
     Active Substance: ACETYLCYSTEINE
  4. ALBUTEROL [Concomitant]
     Active Substance: ALBUTEROL
  5. BENZONATATE [Concomitant]
     Active Substance: BENZONATATE
  6. VITAMINS [Concomitant]
     Active Substance: VITAMINS
  7. CLINDAMYCIN [Concomitant]
     Active Substance: CLINDAMYCIN
  8. DOCUSATE [Concomitant]
  9. ELIQUIS [Concomitant]
     Active Substance: APIXABAN
  10. FOLBIC [Concomitant]
     Active Substance: CYANOCOBALAMIN\FOLIC ACID\PYRIDOXINE
  11. GUAIFENESIN-CODEINE [Concomitant]
  12. HEPARIN [Concomitant]
     Active Substance: HEPARIN SODIUM
  13. VITAMIN B12 [Concomitant]
     Active Substance: CYANOCOBALAMIN
  14. LEVAQUIN [Concomitant]
     Active Substance: LEVOFLOXACIN
  15. LEVOTHYROXINE [Concomitant]
     Active Substance: LEVOTHYROXINE
  16. LIDOCAINE [Concomitant]
     Active Substance: LIDOCAINE
  17. MELATONIN [Concomitant]
     Active Substance: MELATONIN
  18. MIRALAX [Concomitant]
     Active Substance: POLYETHYLENE GLYCOL 3350
  19. ONDANSETRON [Concomitant]
     Active Substance: ONDANSETRON
  20. ONE-A-DAY NOS [Concomitant]
     Active Substance: MINERALS\VITAMINS
  21. QUETIAPINE [Concomitant]
     Active Substance: QUETIAPINE
  22. ROBITUSSIN (GUAIFENESIN) [Concomitant]
     Active Substance: GUAIFENESIN
  23. SENNA [Concomitant]
     Active Substance: SENNA LEAF\SENNOSIDES\SENNOSIDES A AND B
  24. SODIUM CHLORIDE [Concomitant]
     Active Substance: SODIUM CHLORIDE
  25. VANCOMYCIN [Concomitant]
     Active Substance: VANCOMYCIN
  26. VITAMIN B6 [Concomitant]
     Active Substance: PYRIDOXINE HYDROCHLORIDE
  27. ZOFRAN [Concomitant]
     Active Substance: ONDANSETRON HYDROCHLORIDE
  28. ZOSYN [Concomitant]
     Active Substance: PIPERACILLIN SODIUM\TAZOBACTAM SODIUM

REACTIONS (1)
  - Disease progression [None]
